FAERS Safety Report 6851886-2 (Version None)
Quarter: 2010Q3

REPORT INFORMATION
  Report Type: 
  Country: None (occurrence: None)
  Receive Date: 20100717
  Receipt Date: 20080926
  Transmission Date: 20110219
  Serious: No
  Sender: FDA-Public Use
  Company Number: US-PFIZER INC-2008007731

PATIENT
  Sex: Female

DRUGS (3)
  1. CHANTIX [Suspect]
     Indication: SMOKING CESSATION THERAPY
     Route: 048
     Dates: start: 20071228, end: 20080328
  2. CHANTIX [Suspect]
     Indication: NICOTINE DEPENDENCE
  3. CHANTIX [Suspect]
     Indication: TOBACCO ABUSE

REACTIONS (3)
  - ABNORMAL DREAMS [None]
  - IRRITABILITY [None]
  - MEDICATION ERROR [None]
